FAERS Safety Report 18337339 (Version 1)
Quarter: 2020Q4

REPORT INFORMATION
  Report Type: Spontaneous
  Country: US (occurrence: US)
  Receive Date: 20201002
  Receipt Date: 20201002
  Transmission Date: 20210113
  Serious: No
  Sender: FDA-Public Use
  Company Number: US-BRISTOL-MYERS SQUIBB COMPANY-BMS-2020-081105

PATIENT
  Age: 71 Year
  Sex: Male
  Weight: 99.77 kg

DRUGS (3)
  1. VASCEPA [Suspect]
     Active Substance: ICOSAPENT ETHYL
     Indication: RETINAL ARTERY OCCLUSION
     Dosage: TWO CAPSULES TWICE A DAY
     Route: 048
     Dates: start: 201910
  2. APIXABAN [Suspect]
     Active Substance: APIXABAN
     Indication: CEREBROVASCULAR ACCIDENT PROPHYLAXIS
     Dosage: 2 DOSAGE FORM A DAY
     Route: 065
     Dates: start: 201910
  3. VASCEPA [Suspect]
     Active Substance: ICOSAPENT ETHYL
     Indication: ANTICOAGULANT THERAPY

REACTIONS (1)
  - Contusion [Unknown]

NARRATIVE: CASE EVENT DATE: 202006
